FAERS Safety Report 13502767 (Version 1)
Quarter: 2017Q2

REPORT INFORMATION
  Report Type: Spontaneous
  Country: IT (occurrence: IT)
  Receive Date: 20170502
  Receipt Date: 20170502
  Transmission Date: 20170830
  Serious: Yes (Other)
  Sender: FDA-Public Use
  Company Number: IT-EDENBRIDGE PHARMACEUTICALS, LLC-IT-2017EDE000030

PATIENT
  Age: 78 Year
  Sex: Male

DRUGS (7)
  1. CARBIDOPA. [Suspect]
     Active Substance: CARBIDOPA
     Dosage: 500 MG, QD
  2. LEVODOPA [Suspect]
     Active Substance: LEVODOPA
     Indication: PARKINSON^S DISEASE
     Dosage: 100 MG, FOUR TIMES
  3. PRAMIPEXOLE. [Suspect]
     Active Substance: PRAMIPEXOLE
     Indication: PARKINSON^S DISEASE
     Dosage: 1.05 MG, QD
  4. CARBIDOPA. [Suspect]
     Active Substance: CARBIDOPA
     Indication: PARKINSON^S DISEASE
     Dosage: 25 MG, FOUR TIMES
  5. LEVODOPA [Suspect]
     Active Substance: LEVODOPA
     Dosage: 200 MG, QD
  6. CARBIDOPA. [Suspect]
     Active Substance: CARBIDOPA
     Dosage: 200 MG, QD
  7. LEVODOPA [Suspect]
     Active Substance: LEVODOPA
     Dosage: 500 MG, QD

REACTIONS (1)
  - Delusion of replacement [Recovered/Resolved]
